FAERS Safety Report 6146675-0 (Version None)
Quarter: 2009Q2

REPORT INFORMATION
  Report Type: 
  Country: None (occurrence: None)
  Receive Date: 20090403
  Receipt Date: 20090403
  Transmission Date: 20091009
  Serious: Yes (Hospitalization)
  Sender: FDA-Public Use
  Company Number: None

PATIENT
  Age: 59 Year
  Sex: Female

DRUGS (1)
  1. LORAZEPAM [Suspect]
     Dosage: 1 MG BID PO
     Route: 048
     Dates: start: 20071219, end: 20081021

REACTIONS (3)
  - BILE DUCT STONE [None]
  - HEPATIC FUNCTION ABNORMAL [None]
  - SOMNOLENCE [None]
